FAERS Safety Report 11532096 (Version 4)
Quarter: 2017Q2

REPORT INFORMATION
  Report Type: Spontaneous
  Country: AU (occurrence: AU)
  Receive Date: 20150921
  Receipt Date: 20170508
  Transmission Date: 20170829
  Serious: Yes (Life-Threatening, Hospitalization)
  Sender: FDA-Public Use
  Company Number: AU-AMGEN-AUSSP2015096862

PATIENT
  Age: 59 Year
  Sex: Female

DRUGS (3)
  1. IRON [Suspect]
     Active Substance: IRON
     Indication: IRON DEFICIENCY
     Dosage: 1000 MG, UNK
     Route: 042
  2. FERRUM H [Concomitant]
     Dosage: 1000 MG, QD
     Route: 042
  3. PROLIA [Suspect]
     Active Substance: DENOSUMAB
     Indication: OSTEOPOROSIS
     Dosage: 60 MG, UNK
     Route: 065

REACTIONS (6)
  - Incorrect route of drug administration [Unknown]
  - Off label use [Unknown]
  - Overdose [Unknown]
  - Hypophosphataemia [Recovered/Resolved]
  - Bone metabolism disorder [Unknown]
  - Hypocalcaemia [Recovered/Resolved]
